FAERS Safety Report 7267236-6 (Version None)
Quarter: 2011Q1

REPORT INFORMATION
  Report Type: 
  Country: None (occurrence: None)
  Receive Date: 20110201
  Receipt Date: 20110124
  Transmission Date: 20110831
  Serious: Yes (Other)
  Sender: FDA-Public Use
  Company Number: US-PERRIGO-11US000602

PATIENT
  Sex: Female
  Weight: 86.168 kg

DRUGS (3)
  1. MAXZIDE [Concomitant]
     Indication: BLOOD PRESSURE
     Dosage: 20 MG, QD
     Route: 048
  2. ZOCOR [Concomitant]
     Indication: BLOOD CHOLESTEROL INCREASED
     Dosage: 20 MG, QD
     Route: 048
  3. ASPIRIN 325MG COATED 416 [Suspect]
     Indication: PAIN IN EXTREMITY
     Dosage: 325 MG, PRN
     Route: 048
     Dates: start: 20080101, end: 20110123

REACTIONS (2)
  - SOMNOLENCE [None]
  - HALLUCINATION [None]
